FAERS Safety Report 15121524 (Version 2)
Quarter: 2018Q3

REPORT INFORMATION
  Report Type: Spontaneous
  Country: US (occurrence: US)
  Receive Date: 20180709
  Receipt Date: 20180921
  Transmission Date: 20181010
  Serious: Yes (Hospitalization)
  Sender: FDA-Public Use
  Company Number: US-JNJFOC-20180706788

PATIENT
  Age: 50 Year
  Sex: Male

DRUGS (1)
  1. INVOKANA [Suspect]
     Active Substance: CANAGLIFLOZIN
     Indication: TYPE 2 DIABETES MELLITUS
     Route: 048
     Dates: start: 20150521, end: 20150629

REACTIONS (3)
  - Osteomyelitis [Recovering/Resolving]
  - Diabetic foot infection [Recovering/Resolving]
  - Toe amputation [Unknown]

NARRATIVE: CASE EVENT DATE: 201510
